FAERS Safety Report 5744782-5 (Version None)
Quarter: 2008Q2

REPORT INFORMATION
  Report Type: 
  Country: None (occurrence: None)
  Receive Date: 20080520
  Receipt Date: 20080512
  Transmission Date: 20081010
  Serious: Yes (Other)
  Sender: FDA-Public Use
  Company Number: US-MERCK-0804USA03651

PATIENT
  Age: 10 Year
  Sex: Male
  Weight: 61 kg

DRUGS (5)
  1. SINGULAIR [Suspect]
     Indication: CONJUNCTIVITIS ALLERGIC
     Route: 048
     Dates: start: 20040501, end: 20080101
  2. SINGULAIR [Suspect]
     Indication: ASTHMA
     Route: 048
     Dates: start: 20040501, end: 20080101
  3. ZYRTEC [Concomitant]
     Route: 065
  4. FLONASE [Concomitant]
     Route: 065
  5. ALBUTEROL [Concomitant]
     Route: 065

REACTIONS (4)
  - HYPERSENSITIVITY [None]
  - RHINITIS ALLERGIC [None]
  - SUICIDAL IDEATION [None]
  - TRACHEITIS [None]
